FAERS Safety Report 17407027 (Version 1)
Quarter: 2020Q1

REPORT INFORMATION
  Report Type: Spontaneous
  Country: US (occurrence: US)
  Receive Date: 20200128
  Receipt Date: 20200128
  Transmission Date: 20200409
  Serious: Yes (Hospitalization)
  Sender: FDA-Public Use
  Company Number: None

PATIENT
  Age: 45 Year
  Sex: Female

DRUGS (15)
  1. CRUSH VIT C [Concomitant]
  2. DICLOFENAC [Concomitant]
     Active Substance: DICLOFENAC
  3. LEVOTHYROXIN [Concomitant]
     Active Substance: LEVOTHYROXINE
  4. MELOXICAM. [Concomitant]
     Active Substance: MELOXICAM
  5. TURMERIC [Concomitant]
     Active Substance: HERBALS\TURMERIC
  6. PREDNISONE. [Concomitant]
     Active Substance: PREDNISONE
  7. ESCITALOPRA [Concomitant]
  8. LEXAPRO [Concomitant]
     Active Substance: ESCITALOPRAM OXALATE
  9. ACTEMRA [Suspect]
     Active Substance: TOCILIZUMAB
     Indication: RHEUMATOID ARTHRITIS
     Dosage: ?          OTHER DOSE:1 PEN;OTHER FREQUENCY:Q7D;?
     Route: 058
     Dates: start: 20191118
  10. NAPROXEN. [Concomitant]
     Active Substance: NAPROXEN
  11. SYNTHROID [Concomitant]
     Active Substance: LEVOTHYROXINE SODIUM
  12. TRAMADOL HCL [Concomitant]
     Active Substance: TRAMADOL HYDROCHLORIDE
  13. LIOTHYRONINE [Concomitant]
     Active Substance: LIOTHYRONINE
  14. ONDANSETRON [Concomitant]
     Active Substance: ONDANSETRON
  15. CALCIFEROL [Concomitant]

REACTIONS (2)
  - Therapy cessation [None]
  - Rotator cuff repair [None]

NARRATIVE: CASE EVENT DATE: 20191231
